FAERS Safety Report 9507002 (Version 1)
Quarter: 2013Q3

REPORT INFORMATION
  Report Type: Spontaneous
  Country: US (occurrence: US)
  Receive Date: 20130909
  Receipt Date: 20130909
  Transmission Date: 20140515
  Serious: No
  Sender: FDA-Public Use
  Company Number: US-009507513-1309USA000322

PATIENT
  Sex: Female

DRUGS (1)
  1. SINGULAIR [Suspect]
     Route: 048

REACTIONS (8)
  - Asthma [Unknown]
  - Chest discomfort [Unknown]
  - Bronchospasm [Unknown]
  - Gastrointestinal pain [Unknown]
  - Asthma [Unknown]
  - Chest discomfort [Unknown]
  - Bronchospasm [Unknown]
  - Gastrointestinal pain [Unknown]
